FAERS Safety Report 15615589 (Version 1)
Quarter: 2018Q4

REPORT INFORMATION
  Report Type: Spontaneous
  Country: GB (occurrence: US)
  Receive Date: 20181114
  Receipt Date: 20181114
  Transmission Date: 20190205
  Serious: Yes (Life-Threatening, Hospitalization)
  Sender: FDA-Public Use
  Company Number: GB-ROCHE-2213872

PATIENT
  Age: 71 Year
  Sex: Male

DRUGS (2)
  1. CAPECITABINE. [Suspect]
     Active Substance: CAPECITABINE
     Indication: BREAST CANCER
     Dosage: UNK UNK,UNK
     Route: 048
  2. CAPECITABINE. [Suspect]
     Active Substance: CAPECITABINE
     Indication: METASTASES TO BONE

REACTIONS (12)
  - Cardiac murmur [Recovered/Resolved]
  - Hyperhidrosis [Recovered/Resolved]
  - Radiation associated pain [Recovered/Resolved]
  - Pain in extremity [Recovered/Resolved]
  - Blood pressure increased [Recovered/Resolved]
  - Troponin T increased [Recovered/Resolved]
  - Heart rate increased [Recovered/Resolved]
  - Chest pain [Recovered/Resolved]
  - Electrocardiogram ST segment elevation [Recovered/Resolved]
  - Arteriospasm coronary [Recovered/Resolved]
  - Acute coronary syndrome [Recovered/Resolved]
  - Pain [Recovered/Resolved]
